FAERS Safety Report 10083642 (Version 1)
Quarter: 2014Q2

REPORT INFORMATION
  Report Type: Spontaneous
  Country: US (occurrence: US)
  Receive Date: 20140417
  Receipt Date: 20140417
  Transmission Date: 20141212
  Serious: No
  Sender: FDA-Public Use
  Company Number: US-PFIZER INC-2014103818

PATIENT
  Age: 51 Year
  Sex: Female
  Weight: 48.1 kg

DRUGS (5)
  1. PREMARIN [Suspect]
     Indication: HORMONE REPLACEMENT THERAPY
     Dosage: 0.625 MG, 1X/DAY
     Route: 048
     Dates: start: 1996, end: 1996
  2. PREMARIN [Suspect]
     Dosage: 0.46 MG, 1X/DAY
     Route: 048
     Dates: start: 1996
  3. PREMARIN [Suspect]
     Dosage: 0.625 MG, 1X/DAY
     Route: 048
  4. INSULIN [Concomitant]
     Indication: DIABETES MELLITUS
     Dosage: (20 IU OR 10 IU), AS NEEDED
  5. ASPIRIN [Concomitant]
     Indication: ANTICOAGULANT THERAPY
     Dosage: 325 MG, DAILY

REACTIONS (2)
  - Intentional product misuse [Unknown]
  - Blood glucose decreased [Unknown]
